FAERS Safety Report 8349196-X (Version None)
Quarter: 2012Q2

REPORT INFORMATION
  Report Type: 
  Country: None (occurrence: None)
  Receive Date: 20120508
  Receipt Date: 20120424
  Transmission Date: 20120825
  Serious: Yes (Life-Threatening, Hospitalization, Other)
  Sender: FDA-Public Use
  Company Number: GB-DEXPHARM-20120370

PATIENT
  Age: 78 Year
  Sex: Male

DRUGS (7)
  1. PROPOFOL [Concomitant]
  2. CEFUROXIME [Suspect]
     Indication: PROPHYLAXIS
     Dosage: 1.5 G GRAM(S), INTRAVENOUS (NOT OTHERWISE SPECIFIED)
     Route: 042
     Dates: start: 20120413, end: 20120413
  3. ROCURONIUM BROMIDE [Suspect]
     Indication: GENERAL ANAESTHESIA
     Dosage: 40 MG MILLIGRAM(S), INTRAVENOUS (NOT OTHERWISE SPECIFIED)
     Route: 042
     Dates: start: 20120413, end: 20120413
  4. BETADINE [Concomitant]
  5. REMIFENTANIL [Concomitant]
  6. METRONIDAZOLE [Concomitant]
  7. CHLORHEXIDINE GLUCONATE [Suspect]
     Indication: INFECTION PROPHYLAXIS
     Dosage: TOPICAL
     Route: 061
     Dates: start: 20120413, end: 20120413

REACTIONS (5)
  - OXYGEN SATURATION DECREASED [None]
  - RESUSCITATION [None]
  - FLUSHING [None]
  - HYPOTENSION [None]
  - HYPERSENSITIVITY [None]
